FAERS Safety Report 6441592-0 (Version None)
Quarter: 2009Q4

REPORT INFORMATION
  Report Type: 
  Country: None (occurrence: None)
  Receive Date: 20091116
  Receipt Date: 20091104
  Transmission Date: 20100525
  Serious: Yes (Hospitalization)
  Sender: FDA-Public Use
  Company Number: DE-AMGEN-US373740

PATIENT
  Sex: Female

DRUGS (2)
  1. ENBREL [Suspect]
     Indication: RHEUMATOID ARTHRITIS
     Dosage: PRE-FILLED SYRINGE, DOSE AND FREQUENCY UNKNOWN
     Route: 058
     Dates: start: 20090112, end: 20090824
  2. ENBREL [Suspect]
     Dosage: PRE-FILLED PEN, 50 MG ONE TIME PER WEEK
     Route: 058
     Dates: start: 20091009

REACTIONS (5)
  - DIVERTICULITIS [None]
  - ILEUS [None]
  - INCREASED UPPER AIRWAY SECRETION [None]
  - INJECTION SITE PRURITUS [None]
  - INJECTION SITE SWELLING [None]
